FAERS Safety Report 17406146 (Version 2)
Quarter: 2020Q1

REPORT INFORMATION
  Report Type: Spontaneous
  Country: US (occurrence: US)
  Receive Date: 20200212
  Receipt Date: 20200327
  Transmission Date: 20200409
  Serious: Yes (Other)
  Sender: FDA-Public Use
  Company Number: US-GLAXOSMITHKLINE-US2020020866

PATIENT
  Age: 78 Year
  Sex: Male

DRUGS (2)
  1. ANORO ELLIPTA [Suspect]
     Active Substance: UMECLIDINIUM BROMIDE\VILANTEROL TRIFENATATE
     Indication: EMPHYSEMA
     Dosage: 1 PUFF(S), 1D
     Dates: start: 2017
  2. MAGNESIUM [Concomitant]
     Active Substance: MAGNESIUM
     Indication: PRODUCT USED FOR UNKNOWN INDICATION
     Dosage: UNK
     Route: 065

REACTIONS (10)
  - Oxygen saturation decreased [Unknown]
  - Condition aggravated [Unknown]
  - Nerve compression [Unknown]
  - Dementia [Unknown]
  - Underdose [Unknown]
  - Extra dose administered [Unknown]
  - Chest pain [Recovering/Resolving]
  - Dyspepsia [Unknown]
  - Insomnia [Unknown]
  - Product complaint [Unknown]

NARRATIVE: CASE EVENT DATE: 202001
